FAERS Safety Report 7911112-X (Version None)
Quarter: 2011Q4

REPORT INFORMATION
  Report Type: 
  Country: None (occurrence: None)
  Receive Date: 20111109
  Receipt Date: 20111027
  Transmission Date: 20120403
  Serious: Yes (Death)
  Sender: FDA-Public Use
  Company Number: 1000025231

PATIENT
  Age: 53 Year
  Sex: Male

DRUGS (3)
  1. TEMESTA (LORAZEPAM) (LORAZEPAM) [Concomitant]
  2. ESCITALOPRAM [Suspect]
     Indication: DEPRESSION
     Dosage: 10 MG (10 MG,1 IN 1 D) ; 10 MG (10 MG,1 IN 1 D)
     Dates: start: 20110701
  3. ESCITALOPRAM [Suspect]
     Indication: DEPRESSION
     Dosage: 10 MG (10 MG,1 IN 1 D) ; 10 MG (10 MG,1 IN 1 D)
     Dates: start: 20110701, end: 20110701

REACTIONS (3)
  - ASPHYXIA [None]
  - COMPLETED SUICIDE [None]
  - HYPERHIDROSIS [None]
